FAERS Safety Report 16458835 (Version 1)
Quarter: 2019Q2

REPORT INFORMATION
  Report Type: Spontaneous
  Country: US (occurrence: US)
  Receive Date: 20190620
  Receipt Date: 20190620
  Transmission Date: 20190711
  Serious: No
  Sender: FDA-Public Use
  Company Number: US-THERAPEUTICSMD-2019TMD00896

PATIENT
  Age: 70 Year
  Sex: Female
  Weight: 48.53 kg

DRUGS (16)
  1. IMVEXXY [Suspect]
     Active Substance: ESTRADIOL
     Dosage: 10 ?G, 2X/WEEK BEFORE BED
     Route: 067
     Dates: end: 20190420
  2. CHROMIUM [Concomitant]
     Active Substance: CHROMIC CHLORIDE\CHROMIUM
  3. ALPHA LIPOIC ACID [Concomitant]
     Active Substance: .ALPHA.-LIPOIC ACID
  4. OSTEOBEN [Concomitant]
  5. COLINE-PHOSPHATIDYLCHOLINE [Concomitant]
  6. VITAMIN B COMPLEX [Concomitant]
     Active Substance: CYANOCOBALAMIN\DEXPANTHENOL\NIACINAMIDE\PYRIDOXINE HYDROCHLORIDE\RIBOFLAVIN 5^-PHOSPHATE SODIUM\THIAMINE HYDROCHLORIDE\VITAMIN B COMPLEX
  7. OMEGA 3 [Concomitant]
     Active Substance: OMEGA-3 FATTY ACIDS
  8. FLAXSEED [Concomitant]
     Active Substance: FLAX SEED
  9. IMVEXXY [Suspect]
     Active Substance: ESTRADIOL
     Indication: ATROPHIC VULVOVAGINITIS
     Dosage: 10 ?G, 2X/WEEK BEFORE BED
     Route: 067
     Dates: start: 201808
  10. TRF 350 [Concomitant]
  11. PHOSPHATIDYL SERINE [Concomitant]
     Active Substance: PHOSPHATIDYL SERINE
  12. SELENIUM [Concomitant]
     Active Substance: SELENIUM
  13. AREDS 2 [Concomitant]
     Active Substance: MINERALS\VITAMINS
  14. AFLIBERCEPT [Concomitant]
     Active Substance: AFLIBERCEPT
     Dosage: 2 INJECTIONS EVERY 4-6 WEEKS
     Dates: start: 201801
  15. VITAMIN K2 [Concomitant]
     Active Substance: MENAQUINONE 6
  16. OSSOPAN MD [Concomitant]

REACTIONS (5)
  - Middle insomnia [Recovered/Resolved]
  - Product residue present [Recovered/Resolved]
  - Off label use [Recovered/Resolved]
  - Vulvovaginal pruritus [Recovered/Resolved]
  - Product solubility abnormal [Recovered/Resolved]

NARRATIVE: CASE EVENT DATE: 201808
